FAERS Safety Report 9227292 (Version 1)
Quarter: 2013Q1

REPORT INFORMATION
  Report Type: Spontaneous
  Country: US (occurrence: None)
  Receive Date: 20121002
  Receipt Date: 20121002
  Transmission Date: 20140127
  Serious: Yes (Other)
  Sender: FDA-Public Use
  Company Number: M-11-028

PATIENT
  Sex: Female

DRUGS (1)
  1. LEVOTHYROXINE SODIUM, UNKNOWN STRENGTH [Suspect]
     Dosage: ORAL (047)
     Route: 048

REACTIONS (2)
  - Micturition urgency [None]
  - Pollakiuria [None]
